FAERS Safety Report 8796882 (Version 2)
Quarter: 2015Q1

REPORT INFORMATION
  Report Type: Report from Study
  Country: US (occurrence: US)
  Receive Date: 20120917
  Receipt Date: 20150211
  Transmission Date: 20150721
  Serious: Yes (Death)
  Sender: FDA-Public Use
  Company Number: US-ROCHE-1128027

PATIENT
  Age: 75 Year
  Sex: Female

DRUGS (13)
  1. BENADRYL [Concomitant]
     Active Substance: DIPHENHYDRAMINE HYDROCHLORIDE
     Dosage: RECEIVED ON 28/SEP/2009, 19/OCT/2009, 09/NOV/2009, 30/NOV/2009, 28/DEC/2009, 18/JAN/2010.
     Route: 042
  2. NEXIUM [Concomitant]
     Active Substance: ESOMEPRAZOLE MAGNESIUM
  3. CARBOPLATINUM [Concomitant]
     Active Substance: CARBOPLATIN
     Route: 042
     Dates: end: 20090928
  4. CARBOPLATINUM [Concomitant]
     Active Substance: CARBOPLATIN
     Dosage: ALSO RECEIVED ON19/OCT/2009, 09/NOV/2009
     Route: 042
  5. NEULASTA [Concomitant]
     Active Substance: PEGFILGRASTIM
     Dosage: ALSO RECEIVED ON 19/OCT/2009, 09/NOV/2009,  01/DEC/2009, 29/DEC/2009, 19/JAN/2010
     Route: 058
  6. DECADRON [Concomitant]
     Active Substance: DEXAMETHASONE
     Dosage: RECEIVED ON 28/SEP/2009, 19/OCT/2009, 09/NOV/2009, 30/NOV/2009, 28/DEC/2009, 18/JAN/2010.
     Route: 042
  7. AVASTIN [Suspect]
     Active Substance: BEVACIZUMAB
     Indication: MALIGNANT MELANOMA
     Dosage: 10 MG/KG.
     Route: 042
     Dates: start: 20091005
  8. ALOXI [Concomitant]
     Active Substance: PALONOSETRON HYDROCHLORIDE
     Dosage: RECEIVED ON 28/SEP/2009, 19/OCT/2009, 09/NOV/2009, 30/NOV/2009, 28/DEC/2009, 18/JAN/2010.
     Route: 042
  9. ZANTAC [Concomitant]
     Active Substance: RANITIDINE HYDROCHLORIDE
     Dosage: RECEIVED ON 28/SEP/2009, 19/OCT/2009, 09/NOV/2009, 30/NOV/2009, 28/DEC/2009, 18/JAN/2010.
     Route: 042
  10. TAXOL [Concomitant]
     Active Substance: PACLITAXEL
     Dosage: 175 MG/M2 IN 500 CC NORMAL SALINE, RECEIVED ON 19/OCT/2009, 09/NOV/2009, 30/NOV/2009, 28/DEC/2009
     Route: 042
     Dates: start: 20090928
  11. CARBOPLATINUM [Concomitant]
     Active Substance: CARBOPLATIN
     Dosage: RECEIVED ON 19/OCT/2009, 28/DEC/2009, 18/JAN/2010, 30/NOV/2009 IN 250CC NORMAL SALINE
     Route: 042
  12. AVASTIN [Suspect]
     Active Substance: BEVACIZUMAB
     Indication: METASTASES TO LIVER
     Dosage: 15 MG/KG, ALSO RECEIVED ON 09/NOV/2009, 30/NOV/2009, 28/DEC/2009, 18/JAN/2010 IN 100 CC NORMAL SALIN
     Route: 042
     Dates: start: 20091019
  13. TAXOL [Concomitant]
     Active Substance: PACLITAXEL
     Dosage: 175 MG/M2 IN 500 CC NORMAL SALINE, RECEIVED ON 18/JAN/2010
     Route: 042

REACTIONS (8)
  - Anaemia [Unknown]
  - Fatigue [Unknown]
  - Dysgeusia [Unknown]
  - Decreased appetite [Unknown]
  - Death [Fatal]
  - Nausea [Unknown]
  - Blood alkaline phosphatase increased [Unknown]
  - Alopecia [Unknown]

NARRATIVE: CASE EVENT DATE: 201005
